FAERS Safety Report 5219933-1 (Version None)
Quarter: 2007Q1

REPORT INFORMATION
  Report Type: 
  Country: None (occurrence: None)
  Receive Date: 20070125
  Receipt Date: 20070116
  Transmission Date: 20070707
  Serious: Yes (Other)
  Sender: FDA-Public Use
  Company Number: PL-ABBOTT-06P-129-0353926-00

PATIENT
  Age: 58 Year
  Sex: Female
  Weight: 127 kg

DRUGS (12)
  1. MERIDIA [Suspect]
     Indication: OBESITY
     Route: 048
  2. METFORMIN HYDROCHLORIDE [Concomitant]
     Indication: DIABETES MELLITUS
     Route: 048
  3. INSULIN HUMAN [Concomitant]
     Indication: DIABETES MELLITUS
     Route: 058
  4. BETAXOLOL HYDROCHLORIDE [Concomitant]
     Indication: HYPERTENSION
     Route: 048
  5. AMLODIPINE [Concomitant]
     Indication: HYPERTENSION
     Route: 048
  6. SPIRONOLACTONE [Concomitant]
     Indication: HYPERTENSION
     Route: 048
  7. DOXAZOSIN MESYLATE [Concomitant]
     Indication: HYPERTENSION
     Route: 048
  8. CILAZAPRIL [Concomitant]
     Indication: HYPERTENSION
     Route: 048
  9. FUROSEMIDE [Concomitant]
     Indication: HYPERTENSION
     Route: 048
  10. FENORATIO RETARD [Concomitant]
     Indication: HYPERLIPIDAEMIA
     Route: 048
  11. ZILORIK [Concomitant]
     Indication: GOUT
     Route: 048
  12. GLICLAZIDE [Concomitant]
     Indication: DIABETES MELLITUS
     Route: 048

REACTIONS (2)
  - CATARACT [None]
  - VISUAL ACUITY REDUCED [None]
